FAERS Safety Report 9120282 (Version 1)
Quarter: 2013Q1

REPORT INFORMATION
  Report Type: Spontaneous
  Country: FR (occurrence: FR)
  Receive Date: 20130226
  Receipt Date: 20130226
  Transmission Date: 20140127
  Serious: Yes (Hospitalization)
  Sender: FDA-Public Use
  Company Number: FR-TEVA-387086ISR

PATIENT
  Age: 66 Year
  Sex: Male

DRUGS (3)
  1. FLUOROURACIL ^TEVA^ [Suspect]
     Indication: COLON CANCER
     Route: 042
     Dates: start: 20120125, end: 20120502
  2. CAMPTO [Suspect]
     Indication: COLON CANCER
     Dosage: A 98-DAY-TREATMENT
     Route: 042
     Dates: start: 20120125, end: 20120502
  3. AVASTIN [Suspect]
     Indication: COLON CANCER
     Dosage: A 98-DAY-TREATMENT
     Route: 042
     Dates: start: 20120125, end: 20120502

REACTIONS (6)
  - Renal failure acute [Recovering/Resolving]
  - Diarrhoea [Recovered/Resolved]
  - Decreased appetite [Unknown]
  - Vomiting [Unknown]
  - Oliguria [Recovered/Resolved]
  - Asthenia [Unknown]
